FAERS Safety Report 7399705-2 (Version None)
Quarter: 2011Q2

REPORT INFORMATION
  Report Type: 
  Country: None (occurrence: None)
  Receive Date: 20110407
  Receipt Date: 20110323
  Transmission Date: 20111010
  Serious: Yes (Hospitalization)
  Sender: FDA-Public Use
  Company Number: CA-JNJFOC-20110310300

PATIENT
  Sex: Female
  Weight: 48 kg

DRUGS (2)
  1. REMICADE [Suspect]
     Indication: CROHN'S DISEASE
     Dosage: 4 DOSES BEFORE SURGERY
     Route: 042
  2. REMICADE [Suspect]
     Route: 042

REACTIONS (8)
  - VOMITING [None]
  - DRUG INEFFECTIVE [None]
  - DIARRHOEA [None]
  - URTICARIA [None]
  - ASTHENIA [None]
  - SYNCOPE [None]
  - HYPOKINESIA [None]
  - SURGERY [None]
